FAERS Safety Report 6900495-5 (Version None)
Quarter: 2010Q3

REPORT INFORMATION
  Report Type: 
  Country: None (occurrence: None)
  Receive Date: 20100803
  Receipt Date: 20100722
  Transmission Date: 20110219
  Serious: Yes (Other)
  Sender: FDA-Public Use
  Company Number: FR-PFIZER INC-2010091750

PATIENT
  Age: 22 Year
  Sex: Female

DRUGS (6)
  1. LYRICA [Suspect]
     Indication: PAIN
     Dosage: 75 MG, 2X/DAY
     Route: 048
     Dates: start: 20100501, end: 20100514
  2. SOLU-MEDROL [Suspect]
     Dosage: 750 MG, 3X/DAY
     Route: 040
     Dates: start: 20100511, end: 20100514
  3. ACUPAN [Suspect]
     Indication: PAIN
     Dosage: 20 MG, 2X/DAY
     Route: 048
     Dates: start: 20100513, end: 20100514
  4. PARACETAMOL [Concomitant]
     Indication: PAIN
     Dosage: UNK
     Route: 048
  5. NEXIUM [Concomitant]
     Dosage: UNK
     Route: 048
     Dates: start: 20100513
  6. ZOLPIDEM [Concomitant]
     Dosage: 10 MG, 1X/DAY
     Route: 048
     Dates: start: 20100513, end: 20100513

REACTIONS (1)
  - CONVULSION [None]
